FAERS Safety Report 8017710-X (Version None)
Quarter: 2012Q1

REPORT INFORMATION
  Report Type: 
  Country: None (occurrence: None)
  Receive Date: 20120103
  Receipt Date: 20111227
  Transmission Date: 20120608
  Serious: No
  Sender: FDA-Public Use
  Company Number: US-PFIZER INC-2011314428

PATIENT
  Sex: Male
  Weight: 71.655 kg

DRUGS (3)
  1. VIAGRA [Suspect]
     Indication: ERECTILE DYSFUNCTION
     Dosage: UNK, AS NEEDED
     Route: 048
  2. PLAVIX [Concomitant]
     Indication: STENT PLACEMENT
     Dosage: 75 MG, DAILY
  3. LEVITRA [Suspect]
     Indication: ERECTILE DYSFUNCTION
     Dosage: UNK, AS NEEDED
     Route: 048

REACTIONS (1)
  - FLUSHING [None]
